FAERS Safety Report 5650425-1 (Version None)
Quarter: 2008Q1

REPORT INFORMATION
  Report Type: 
  Country: None (occurrence: None)
  Receive Date: 20080303
  Receipt Date: 20080228
  Transmission Date: 20080703
  Serious: Yes (Other)
  Sender: FDA-Public Use
  Company Number: 2008SP004190

PATIENT
  Age: 68 Year
  Sex: Female

DRUGS (1)
  1. DIPROSTENE (BETAMETHASONE SODIUM PHOSPHATE/DIPROPIONATE) (BETAMETHASON [Suspect]
     Indication: DRUG USE FOR UNKNOWN INDICATION
     Dosage: 1 DF; ONCE; IA
     Route: 014

REACTIONS (1)
  - ANAPHYLACTIC REACTION [None]
